FAERS Safety Report 24351695 (Version 1)
Quarter: 2024Q3

REPORT INFORMATION
  Report Type: Spontaneous
  Country: SA (occurrence: SA)
  Receive Date: 20240923
  Receipt Date: 20240923
  Transmission Date: 20241017
  Serious: Yes (Life-Threatening, Other)
  Sender: PFIZER
  Company Number: SA-PFIZER INC-PV202400122502

PATIENT
  Age: 3 Year
  Sex: Female
  Weight: 14.2 kg

DRUGS (1)
  1. METHOTREXATE SODIUM [Suspect]
     Active Substance: METHOTREXATE SODIUM
     Indication: Generalised pustular psoriasis
     Dosage: 0.4 MG/KG, WEEKLY

REACTIONS (1)
  - Therapeutic product effect incomplete [Recovered/Resolved]
